FAERS Safety Report 24334644 (Version 1)
Quarter: 2024Q3

REPORT INFORMATION
  Report Type: Spontaneous
  Country: US (occurrence: US)
  Receive Date: 20240918
  Receipt Date: 20240918
  Transmission Date: 20241017
  Serious: No
  Sender: ELI LILLY AND CO
  Company Number: US-ELI_LILLY_AND_COMPANY-US202409011088

PATIENT
  Age: 92 Year
  Sex: Male

DRUGS (16)
  1. HUMULIN N [Suspect]
     Active Substance: INSULIN HUMAN
     Indication: Product used for unknown indication
     Dosage: 12 U, EACH MORNING
     Route: 065
     Dates: start: 202408
  2. HUMULIN N [Suspect]
     Active Substance: INSULIN HUMAN
     Indication: Product used for unknown indication
     Dosage: 12 U, EACH MORNING
     Route: 065
     Dates: start: 202408
  3. HUMULIN N [Suspect]
     Active Substance: INSULIN HUMAN
     Dosage: 14 U, EACH MORNING
     Route: 065
     Dates: start: 202408
  4. HUMULIN N [Suspect]
     Active Substance: INSULIN HUMAN
     Dosage: 14 U, EACH MORNING
     Route: 065
     Dates: start: 202408
  5. HUMULIN N [Suspect]
     Active Substance: INSULIN HUMAN
     Dosage: 7 U, EACH EVENING
     Route: 065
     Dates: start: 202408
  6. HUMULIN N [Suspect]
     Active Substance: INSULIN HUMAN
     Dosage: 7 U, EACH EVENING
     Route: 065
     Dates: start: 202408
  7. HUMULIN N [Suspect]
     Active Substance: INSULIN HUMAN
     Dosage: 9 U, EACH EVENING
     Route: 065
     Dates: start: 202408
  8. HUMULIN N [Suspect]
     Active Substance: INSULIN HUMAN
     Dosage: 9 U, EACH EVENING
     Route: 065
     Dates: start: 202408
  9. HUMULIN N [Suspect]
     Active Substance: INSULIN HUMAN
     Dosage: 12 U, EACH MORNING
     Route: 065
  10. HUMULIN N [Suspect]
     Active Substance: INSULIN HUMAN
     Dosage: 12 U, EACH MORNING
     Route: 065
  11. HUMULIN N [Suspect]
     Active Substance: INSULIN HUMAN
     Dosage: 14 U, EACH MORNING
     Route: 065
  12. HUMULIN N [Suspect]
     Active Substance: INSULIN HUMAN
     Dosage: 14 U, EACH MORNING
     Route: 065
  13. HUMULIN N [Suspect]
     Active Substance: INSULIN HUMAN
     Dosage: 7 U, EACH EVENING
     Route: 065
  14. HUMULIN N [Suspect]
     Active Substance: INSULIN HUMAN
     Dosage: 7 U, EACH EVENING
     Route: 065
  15. HUMULIN N [Suspect]
     Active Substance: INSULIN HUMAN
     Dosage: 9 U, EACH EVENING
     Route: 065
  16. HUMULIN N [Suspect]
     Active Substance: INSULIN HUMAN
     Dosage: 9 U, EACH EVENING
     Route: 065

REACTIONS (4)
  - Blood glucose increased [Unknown]
  - Accidental underdose [Unknown]
  - Injection site pain [Recovered/Resolved]
  - Injection site bruising [Recovering/Resolving]
